FAERS Safety Report 6181138-8 (Version None)
Quarter: 2009Q2

REPORT INFORMATION
  Report Type: 
  Country: None (occurrence: None)
  Receive Date: 20090506
  Receipt Date: 20090427
  Transmission Date: 20091009
  Serious: Yes (Other)
  Sender: FDA-Public Use
  Company Number: PHHY2009AT10129

PATIENT
  Age: 80 Year
  Sex: Male
  Weight: 70 kg

DRUGS (5)
  1. EXJADE [Suspect]
     Indication: IRON OVERLOAD
     Dosage: 1500 MG (20 MG/KG)
  2. EXJADE [Interacting]
     Indication: MYELOFIBROSIS
  3. THALIDOMIDE [Interacting]
  4. BLOOD TRANSFUSION, AUXILIARY PRODUCTS [Concomitant]
  5. PREDNISOLONE [Concomitant]

REACTIONS (7)
  - BLOOD BILIRUBIN INCREASED [None]
  - CHOLESTASIS [None]
  - DRUG INTERACTION [None]
  - GALLBLADDER DISORDER [None]
  - LIVER DISORDER [None]
  - LIVER FUNCTION TEST ABNORMAL [None]
  - TRANSAMINASES INCREASED [None]
